FAERS Safety Report 7805719-8 (Version None)
Quarter: 2011Q4

REPORT INFORMATION
  Report Type: 
  Country: None (occurrence: None)
  Receive Date: 20111011
  Receipt Date: 20110727
  Transmission Date: 20120403
  Serious: Yes (Hospitalization, Other)
  Sender: FDA-Public Use
  Company Number: US-BIOGENIDEC-2011BI018343

PATIENT
  Age: 53 Year
  Sex: Female
  Weight: 92 kg

DRUGS (22)
  1. ZANAFLEX [Concomitant]
  2. BACLOFEN [Concomitant]
  3. ZOVIRAX [Concomitant]
  4. SLIDING SCALE INSULIN [Concomitant]
  5. NITROFURANTOIN [Concomitant]
  6. CEFTIN [Concomitant]
  7. LOVENOX [Concomitant]
     Indication: THROMBOSIS PROPHYLAXIS
     Dates: start: 20110701
  8. METFORMIN HYDROCHLORIDE [Concomitant]
  9. OXYBUTYNIN [Concomitant]
  10. TYSABRI [Suspect]
     Indication: MULTIPLE SCLEROSIS
     Route: 042
     Dates: start: 20070308, end: 20110414
  11. XANAX [Concomitant]
     Dates: start: 20110701
  12. NEURONTIN [Concomitant]
  13. BACLOFEN [Concomitant]
  14. LEVOTHYROXINE SODIUM [Concomitant]
  15. PANTOPRAZOLE [Concomitant]
  16. TOVIAZ [Concomitant]
  17. ZANAFLEX [Concomitant]
  18. ZOLOFT [Concomitant]
  19. VITAMIN TAB [Concomitant]
  20. ASPIRIN [Concomitant]
  21. LIPITOR [Concomitant]
  22. TOBRAMYCIN [Concomitant]

REACTIONS (3)
  - PROGRESSIVE MULTIFOCAL LEUKOENCEPHALOPATHY [None]
  - IMMUNE RECONSTITUTION SYNDROME [None]
  - MULTIPLE SCLEROSIS RELAPSE [None]
